FAERS Safety Report 5477374-6 (Version None)
Quarter: 2007Q4

REPORT INFORMATION
  Report Type: 
  Country: None (occurrence: None)
  Receive Date: 20071001
  Receipt Date: 20070917
  Transmission Date: 20080405
  Serious: Yes (Other)
  Sender: FDA-Public Use
  Company Number: GXKR2007MY08108

PATIENT
  Age: 54 Year
  Sex: Female

DRUGS (1)
  1. ENALAPRIL MALEATE [Suspect]
     Indication: HYPERTENSION
     Dosage: 10 MG, ORAL
     Route: 048

REACTIONS (5)
  - CHEST PAIN [None]
  - HEADACHE [None]
  - OEDEMA PERIPHERAL [None]
  - SYNCOPE [None]
  - VISION BLURRED [None]
